FAERS Safety Report 6716356-0 (Version None)
Quarter: 2010Q2

REPORT INFORMATION
  Report Type: 
  Country: None (occurrence: None)
  Receive Date: 20100506
  Receipt Date: 20100506
  Transmission Date: 20101027
  Serious: Yes (Hospitalization)
  Sender: FDA-Public Use
  Company Number: None

PATIENT
  Age: 38 Year
  Sex: Female
  Weight: 76.2 kg

DRUGS (14)
  1. WARFARIN SODIUM [Suspect]
     Indication: PROPHYLAXIS
     Dosage: UNKNOWN - PO OUT PT DOSE
     Route: 048
  2. WARFARIN SODIUM [Suspect]
     Indication: THROMBOSIS
     Dosage: UNKNOWN - PO OUT PT DOSE
     Route: 048
  3. AMITRIPTLINE HYDROCHLORIDE TAB [Concomitant]
  4. ASPIRIN [Concomitant]
  5. CALCIUM ACETATE [Concomitant]
  6. CINACALCET [Concomitant]
  7. DIPHENHYDRAMINE [Concomitant]
  8. DOCUSATE [Concomitant]
  9. HYDROMORPHONE HCL [Concomitant]
  10. LANSOPRAZOLE [Concomitant]
  11. LORAZEPAM [Concomitant]
  12. METOPROLOL TARTRATE [Concomitant]
  13. OXYCODONE [Concomitant]
  14. SIMVASTATIN [Concomitant]

REACTIONS (1)
  - INTERNATIONAL NORMALISED RATIO INCREASED [None]
